FAERS Safety Report 8115049-5 (Version None)
Quarter: 2012Q1

REPORT INFORMATION
  Report Type: 
  Country: None (occurrence: None)
  Receive Date: 20120206
  Receipt Date: 20120124
  Transmission Date: 20120608
  Serious: Yes (Life-Threatening)
  Sender: FDA-Public Use
  Company Number: AT-CELGENEUS-009-21880-11120672

PATIENT
  Age: 52 Year
  Sex: Male

DRUGS (3)
  1. ENOXAPARIN [Concomitant]
     Route: 065
     Dates: start: 20110506
  2. REVLIMID [Suspect]
     Dosage: 10 MILLIGRAM
     Route: 048
     Dates: start: 20110111, end: 20110608
  3. REVLIMID [Suspect]
     Indication: PERIPHERAL T-CELL LYMPHOMA UNSPECIFIED
     Dosage: 10 MILLIGRAM
     Route: 048
     Dates: start: 20111103

REACTIONS (1)
  - PNEUMONIA VIRAL [None]
